FAERS Safety Report 9613949 (Version 1)
Quarter: 2013Q4

REPORT INFORMATION
  Report Type: Spontaneous
  Country: GB (occurrence: GB)
  Receive Date: 20131011
  Receipt Date: 20131011
  Transmission Date: 20140711
  Serious: Yes (Other)
  Sender: FDA-Public Use
  Company Number: GB-MYLANLABS-2013S1022532

PATIENT
  Age: 32 Year
  Sex: Female
  Weight: 70 kg

DRUGS (2)
  1. ZOLPIDEM [Suspect]
     Indication: INSOMNIA
     Route: 048
     Dates: end: 20120519
  2. TYSABRI [Suspect]
     Indication: MULTIPLE SCLEROSIS
     Dosage: 4/ 1 WEEK
     Route: 048
     Dates: start: 201003, end: 20120511

REACTIONS (2)
  - Exposure during pregnancy [Unknown]
  - Oligohydramnios [Unknown]
